FAERS Safety Report 13618735 (Version 2)
Quarter: 2017Q2

REPORT INFORMATION
  Report Type: Report from Study
  Country: US (occurrence: US)
  Receive Date: 20170606
  Receipt Date: 20170612
  Transmission Date: 20170830
  Serious: Yes (Hospitalization)
  Sender: FDA-Public Use
  Company Number: US-BAXALTA-2017BLT005336

PATIENT
  Sex: Female

DRUGS (2)
  1. CUVITRU [Suspect]
     Active Substance: HUMAN IMMUNOGLOBULIN G
     Dosage: 1 G, 1X A WEEK
     Route: 058
     Dates: start: 20170511
  2. CUVITRU [Suspect]
     Active Substance: HUMAN IMMUNOGLOBULIN G
     Indication: PRODUCT USED FOR UNKNOWN INDICATION
     Dosage: 1 G, 1X A WEEK, 3RD INFUSION
     Route: 058
     Dates: start: 20170525

REACTIONS (2)
  - Dyspnoea [Not Recovered/Not Resolved]
  - Electrolyte imbalance [Unknown]
